FAERS Safety Report 9199478 (Version 2)
Quarter: 2013Q2

REPORT INFORMATION
  Report Type: Spontaneous
  Country: US (occurrence: US)
  Receive Date: 20130329
  Receipt Date: 20130411
  Transmission Date: 20140414
  Serious: No
  Sender: FDA-Public Use
  Company Number: US-009507513-1303USA013577

PATIENT
  Age: 53 Year
  Sex: Female
  Weight: 82.54 kg

DRUGS (7)
  1. VICTRELIS [Suspect]
     Indication: HEPATITIS C
     Dosage: 800 MG, TID
     Route: 048
     Dates: start: 20130304
  2. REBETOL [Suspect]
     Dosage: UNK
  3. PEGASYS [Suspect]
     Dosage: UNK
  4. AMBIEN [Concomitant]
  5. PROCRIT [Concomitant]
  6. NEUPOGEN [Concomitant]
  7. PROMACTA [Concomitant]

REACTIONS (3)
  - White blood cell count decreased [Not Recovered/Not Resolved]
  - Red blood cell count decreased [Not Recovered/Not Resolved]
  - Platelet count decreased [Not Recovered/Not Resolved]
